FAERS Safety Report 20696417 (Version 2)
Quarter: 2022Q2

REPORT INFORMATION
  Report Type: Report from Study
  Country: US (occurrence: US)
  Receive Date: 20220411
  Receipt Date: 20220418
  Transmission Date: 20220721
  Serious: Yes (Hospitalization)
  Sender: FDA-Public Use
  Company Number: US-EXELIXIS-XL18422050784

PATIENT

DRUGS (5)
  1. CABOZANTINIB [Suspect]
     Active Substance: CABOZANTINIB
     Indication: Dedifferentiated liposarcoma
     Dosage: 20 MG, QOD
     Route: 048
     Dates: start: 20211116
  2. NIVOLUMAB [Suspect]
     Active Substance: NIVOLUMAB
     Indication: Dedifferentiated liposarcoma
     Dosage: 480 MG, Q4WEEKS
     Route: 042
     Dates: start: 20211116
  3. IPILIMUMAB [Suspect]
     Active Substance: IPILIMUMAB
     Indication: Dedifferentiated liposarcoma
     Dosage: UNK
     Dates: start: 20211116
  4. LEVOTHYROXINE [Concomitant]
     Active Substance: LEVOTHYROXINE
     Dosage: UNK
  5. PREDNISONE [Concomitant]
     Active Substance: PREDNISONE
     Dosage: UNK

REACTIONS (2)
  - Sepsis [Unknown]
  - Abdominal infection [Unknown]

NARRATIVE: CASE EVENT DATE: 20220319
